FAERS Safety Report 18699592 (Version 1)
Quarter: 2021Q1

REPORT INFORMATION
  Report Type: Spontaneous
  Country: US (occurrence: US)
  Receive Date: 20210104
  Receipt Date: 20210104
  Transmission Date: 20210419
  Serious: No
  Sender: FDA-Public Use
  Company Number: US-PFIZER INC-2020518253

PATIENT
  Age: 51 Year
  Sex: Female
  Weight: 77.11 kg

DRUGS (8)
  1. PROPOFOL. [Concomitant]
     Active Substance: PROPOFOL
     Indication: RADICULOTOMY
     Dosage: 100 MG
     Route: 042
  2. KETAMINE HYDROCHLORIDE. [Concomitant]
     Active Substance: KETAMINE HYDROCHLORIDE
     Indication: RADICULOTOMY
     Dosage: 20 MG
     Route: 042
  3. PEPCID [Concomitant]
     Active Substance: FAMOTIDINE
     Indication: RADICULOTOMY
     Dosage: 20 MG
  4. TRIAMCINOLONE [Concomitant]
     Active Substance: TRIAMCINOLONE
     Indication: RADICULOTOMY
     Dosage: 50 UG
  5. MIDAZOLAM. [Suspect]
     Active Substance: MIDAZOLAM
  6. REGLAN [Concomitant]
     Active Substance: METOCLOPRAMIDE HYDROCHLORIDE
     Indication: RADICULOTOMY
     Dosage: 10 MG
  7. MIDAZOLAM HYDROCHLORIDE. [Suspect]
     Active Substance: MIDAZOLAM HYDROCHLORIDE
     Indication: RADICULOTOMY
     Dosage: 2 MG
  8. XYLOCAINE [Concomitant]
     Active Substance: LIDOCAINE HYDROCHLORIDE
     Indication: RADICULOTOMY
     Dosage: UNK (1%/5ML STRENGTH, FURTHER DETAILS UNKNOWN)

REACTIONS (1)
  - False positive investigation result [Unknown]

NARRATIVE: CASE EVENT DATE: 20201223
